FAERS Safety Report 7824492-0 (Version None)
Quarter: 2011Q4

REPORT INFORMATION
  Report Type: 
  Country: None (occurrence: None)
  Receive Date: 20111019
  Receipt Date: 20111017
  Transmission Date: 20120403
  Serious: Yes (Hospitalization, Other)
  Sender: FDA-Public Use
  Company Number: CA-TEVA-305495USA

PATIENT
  Age: 20 Month

DRUGS (1)
  1. ACETAMINOPHEN AND OXYCODONE HCL [Suspect]

REACTIONS (3)
  - OVERDOSE [None]
  - DYSKINESIA [None]
  - SEDATION [None]
